FAERS Safety Report 10070012 (Version 1)
Quarter: 2014Q2

REPORT INFORMATION
  Report Type: Spontaneous
  Country: GB (occurrence: None)
  Receive Date: 20140408
  Receipt Date: 20140408
  Transmission Date: 20141212
  Serious: Yes (Other)
  Sender: FDA-Public Use
  Company Number: AUR-APL-2014-04074

PATIENT
  Sex: 0

DRUGS (2)
  1. AMLODIPINE [Suspect]
     Indication: HYPERTENSION
     Dosage: 1 D
     Route: 048
  2. PREDNISOLONE [Concomitant]

REACTIONS (8)
  - Pollakiuria [None]
  - Polymyalgia rheumatica [None]
  - Headache [None]
  - Dyspnoea [None]
  - Cough [None]
  - Vasculitis [None]
  - Joint swelling [None]
  - Wrong technique in drug usage process [None]
